FAERS Safety Report 20578655 (Version 2)
Quarter: 2022Q1

REPORT INFORMATION
  Report Type: Spontaneous
  Country: CH (occurrence: CH)
  Receive Date: 20220310
  Receipt Date: 20220329
  Transmission Date: 20220424
  Serious: Yes (Other)
  Sender: FDA-Public Use
  Company Number: CH-GILEAD-2022-0573073

PATIENT
  Age: 43 Year
  Sex: Female
  Weight: 77.3 kg

DRUGS (4)
  1. TRODELVY [Suspect]
     Active Substance: SACITUZUMAB GOVITECAN-HZIY
     Indication: Neoplasm malignant
     Dosage: UNK
     Route: 042
     Dates: end: 20220217
  2. NALOXONE HYDROCHLORIDE\OXYCODONE HYDROCHLORIDE [Concomitant]
     Active Substance: NALOXONE HYDROCHLORIDE\OXYCODONE HYDROCHLORIDE
     Dosage: UNK
     Route: 048
     Dates: start: 20220104
  3. PANTOPRAZOLE [Concomitant]
     Active Substance: PANTOPRAZOLE
     Dosage: UNK
     Route: 048
     Dates: start: 20211202
  4. VOLTAREN [Concomitant]
     Active Substance: DICLOFENAC SODIUM
     Dosage: UNK
     Route: 048
     Dates: start: 20211124

REACTIONS (1)
  - Disease progression [Not Recovered/Not Resolved]

NARRATIVE: CASE EVENT DATE: 20220217
